FAERS Safety Report 4775789-2 (Version None)
Quarter: 2005Q3

REPORT INFORMATION
  Report Type: 
  Country: None (occurrence: None)
  Receive Date: 20050920
  Receipt Date: 20050920
  Transmission Date: 20060218
  Serious: Yes (Disabling)
  Sender: FDA-Public Use
  Company Number: None

PATIENT
  Age: 67 Year
  Sex: Female
  Weight: 50.3493 kg

DRUGS (4)
  1. ACTONEL [Suspect]
     Indication: DIARRHOEA
     Dosage: 35 MG ONCE A WEEK PO
     Route: 048
     Dates: start: 20050105, end: 20050807
  2. ZOCOR [Concomitant]
  3. GLUCOSAMINE/CHONDROITIN [Concomitant]
  4. MSN CALCIUM [Concomitant]

REACTIONS (1)
  - DIARRHOEA [None]
